FAERS Safety Report 4283508-1 (Version None)
Quarter: 2004Q1

REPORT INFORMATION
  Report Type: 
  Country: None (occurrence: None)
  Receive Date: 20040121
  Receipt Date: 20030509
  Transmission Date: 20041129
  Serious: Yes (Other)
  Sender: FDA-Public Use
  Company Number: A03200300991

PATIENT
  Age: 62 Year
  Sex: Female
  Weight: 76.6579 kg

DRUGS (5)
  1. PLAVIX [Suspect]
     Indication: POOR PERIPHERAL CIRCULATION
     Dosage: 75 MG QD - ORAL
     Route: 048
     Dates: start: 20030416, end: 20030417
  2. PLAVIX [Suspect]
     Indication: STENT PLACEMENT
     Dosage: 75 MG QD - ORAL
     Route: 048
     Dates: start: 20030416, end: 20030417
  3. VALSARTAN [Concomitant]
  4. METOPROLOL SUCCINATE [Concomitant]
  5. BUSPIRONE HCL [Concomitant]

REACTIONS (3)
  - HYPERSENSITIVITY [None]
  - HYPOAESTHESIA [None]
  - PYREXIA [None]
